FAERS Safety Report 13595091 (Version 1)
Quarter: 2017Q2

REPORT INFORMATION
  Report Type: Spontaneous
  Country: NL (occurrence: NL)
  Receive Date: 20170531
  Receipt Date: 20170531
  Transmission Date: 20170830
  Serious: Yes (Other)
  Sender: FDA-Public Use
  Company Number: NL-SUN PHARMACEUTICAL INDUSTRIES LTD-2017R1-141814

PATIENT
  Age: 78 Year
  Sex: Female

DRUGS (1)
  1. VALPROIC ACID. [Suspect]
     Active Substance: VALPROIC ACID
     Indication: MANIA
     Dosage: 2100 MG, DAILY (BODY WEIGHT IN A RATIO OF 20 MG/KG)
     Route: 065

REACTIONS (5)
  - Toxicity to various agents [Recovering/Resolving]
  - Sedation [Recovered/Resolved]
  - Fall [Recovered/Resolved]
  - Vertigo [Recovered/Resolved]
  - Mental status changes [Recovering/Resolving]
